FAERS Safety Report 8499364-1 (Version None)
Quarter: 2012Q3

REPORT INFORMATION
  Report Type: 
  Country: None (occurrence: None)
  Receive Date: 20120710
  Receipt Date: 20120626
  Transmission Date: 20120928
  Serious: Yes (Other)
  Sender: FDA-Public Use
  Company Number: US-JNJFOC-20120613966

PATIENT
  Sex: Female
  Weight: 81.65 kg

DRUGS (6)
  1. TRAMADOL HCL [Concomitant]
     Indication: PAIN
     Route: 048
  2. REMICADE [Suspect]
     Indication: ARTHRITIS
     Route: 042
     Dates: start: 20110801, end: 20120301
  3. REMICADE [Suspect]
     Route: 042
     Dates: start: 20120401, end: 20120501
  4. COUMADIN [Concomitant]
     Indication: PULMONARY EMBOLISM
     Route: 048
  5. LISINOPRIL AND HYDROCHLOROTHIAZIDE [Concomitant]
     Indication: BLOOD PRESSURE
     Dosage: DOSE: 25/20
     Route: 048
  6. COUMADIN [Concomitant]
     Indication: DEEP VEIN THROMBOSIS
     Route: 048

REACTIONS (7)
  - VULVAL DISORDER [None]
  - BLOOD UREA ABNORMAL [None]
  - BLOOD CREATININE ABNORMAL [None]
  - WEIGHT INCREASED [None]
  - PAIN [None]
  - DRUG EFFECT DECREASED [None]
  - BREAST MASS [None]
